FAERS Safety Report 14008227 (Version 1)
Quarter: 2017Q3

REPORT INFORMATION
  Report Type: Spontaneous
  Country: RO (occurrence: RO)
  Receive Date: 20170925
  Receipt Date: 20170925
  Transmission Date: 20171128
  Serious: Yes (Death, Other)
  Sender: FDA-Public Use
  Company Number: RO-BAYER-2017-178800

PATIENT
  Age: 23 Year
  Sex: Female

DRUGS (2)
  1. NEXAVAR [Suspect]
     Active Substance: SORAFENIB
     Indication: METASTASES TO OVARY
  2. NEXAVAR [Suspect]
     Active Substance: SORAFENIB
     Indication: HEPATOCELLULAR CARCINOMA
     Dosage: 200 MG, UNK
     Route: 048
     Dates: start: 2010

REACTIONS (4)
  - Off label use [None]
  - Metastases to peritoneum [None]
  - Hepatocellular carcinoma [Fatal]
  - Therapeutic product ineffective [None]

NARRATIVE: CASE EVENT DATE: 2010
